FAERS Safety Report 9473437 (Version 1)
Quarter: 2013Q3

REPORT INFORMATION
  Report Type: Spontaneous
  Country: US (occurrence: US)
  Receive Date: 20130823
  Receipt Date: 20130823
  Transmission Date: 20140515
  Serious: Yes (Hospitalization, Other)
  Sender: FDA-Public Use
  Company Number: US-BRISTOL-MYERS SQUIBB COMPANY-18973156

PATIENT
  Age: 69 Year
  Sex: Female

DRUGS (15)
  1. SPRYCEL [Suspect]
     Indication: CHRONIC MYELOID LEUKAEMIA
     Dates: start: 201212, end: 20130515
  2. AMITIZA [Concomitant]
  3. CITALOPRAM [Concomitant]
  4. DIAZEPAM [Concomitant]
  5. ETODOLAC [Concomitant]
  6. FERROUS SULFATE [Concomitant]
  7. HYDROCHLOROTHIAZIDE [Concomitant]
  8. HYDROCORTISONE [Concomitant]
     Dosage: HYDROCORTISONE 1% OINTMENT
  9. LEVOTHYROXINE [Concomitant]
  10. LISINOPRIL [Concomitant]
  11. OMEPRAZOLE [Concomitant]
  12. OXYCODONE HCL + ACETAMINOPHEN [Concomitant]
     Dosage: 1DF =10/325
  13. AMBIEN [Concomitant]
  14. PROMETHAZINE [Concomitant]
  15. SIMVASTATIN [Concomitant]

REACTIONS (2)
  - Pulmonary oedema [Unknown]
  - Pleural effusion [Unknown]
